FAERS Safety Report 7943349-8 (Version None)
Quarter: 2011Q4

REPORT INFORMATION
  Report Type: 
  Country: None (occurrence: None)
  Receive Date: 20111128
  Receipt Date: 20111125
  Transmission Date: 20120403
  Serious: Yes (Death, Hospitalization, Other)
  Sender: FDA-Public Use
  Company Number: PHHY2010AU092634

PATIENT
  Sex: Female

DRUGS (8)
  1. TRAMOL [Concomitant]
     Indication: PAIN
     Dosage: 50 MG, UNK
  2. TEMAZEPAM [Concomitant]
     Indication: SLEEP DISORDER
     Dosage: 10 MG, UNK
  3. ENDEP [Concomitant]
     Indication: PAIN
     Dosage: 10 MG, UNK
     Route: 048
     Dates: start: 20080101
  4. PANTOPRAZOLE [Concomitant]
     Dosage: 40 MG, DAILY
  5. COLCHICINE [Concomitant]
     Indication: CHONDROCALCINOSIS PYROPHOSPHATE
     Dosage: 500 MG, UNK
     Route: 048
     Dates: start: 20080101
  6. CLOPIDOGREL BISULFATE [Concomitant]
     Indication: CARDIAC DISORDER
     Dosage: 75 MG, UNK
     Dates: start: 20080101
  7. LASIX [Concomitant]
     Dosage: 20 MG, UNK
     Dates: start: 20100419
  8. ZOLEDRONOC ACID [Suspect]
     Dosage: 5 MG, YEARLY
     Route: 042
     Dates: start: 20090731

REACTIONS (20)
  - B-CELL LYMPHOMA [None]
  - DYSPNOEA [None]
  - ATRIOVENTRICULAR BLOCK [None]
  - MITRAL VALVE INCOMPETENCE [None]
  - CARDIOMEGALY [None]
  - CARDIAC MYXOMA [None]
  - HAEMORRHAGE INTRACRANIAL [None]
  - AORTIC STENOSIS [None]
  - PLEURAL EFFUSION [None]
  - PULMONARY HYPERTENSION [None]
  - PERICARDIAL EFFUSION [None]
  - AORTIC VALVE INCOMPETENCE [None]
  - LYMPHOMA [None]
  - ANGIOSARCOMA [None]
  - ANAEMIA [None]
  - TRICUSPID VALVE INCOMPETENCE [None]
  - COMPRESSION FRACTURE [None]
  - PANCYTOPENIA [None]
  - CARDIAC FAILURE [None]
  - CHRONIC OBSTRUCTIVE PULMONARY DISEASE [None]
